FAERS Safety Report 22115565 (Version 2)
Quarter: 2023Q2

REPORT INFORMATION
  Report Type: Report from Study
  Country: IT (occurrence: IT)
  Receive Date: 20230320
  Receipt Date: 20230405
  Transmission Date: 20230722
  Serious: Yes (Hospitalization, Other)
  Sender: FDA-Public Use
  Company Number: IT-002147023-NVSC2023IT054897

PATIENT

DRUGS (17)
  1. RUXOLITINIB [Suspect]
     Active Substance: RUXOLITINIB
     Indication: Myelofibrosis
     Dosage: 10 MG, BID (CYCLE: 21 DAYS, 2/DAYS)
     Route: 048
     Dates: start: 20210809
  2. NAVITOCLAX [Suspect]
     Active Substance: NAVITOCLAX
     Indication: Myelofibrosis
     Dosage: 100 MG, QD (CYCLE: 21 DAYS, EVERY 1 DAYS)
     Route: 048
     Dates: start: 20210809
  3. ASPIRIN [Concomitant]
     Active Substance: ASPIRIN
     Indication: Thrombosis prophylaxis
     Dosage: 100 MG, QD (EVERY 1 DAYS)
     Route: 065
     Dates: start: 2005
  4. FUROSEMIDE [Concomitant]
     Active Substance: FUROSEMIDE
     Indication: Oedema peripheral
     Dosage: 25 MG, QD (EVERY 1 DAYS)
     Route: 065
     Dates: start: 202104
  5. ATENOLOL [Concomitant]
     Active Substance: ATENOLOL
     Indication: Hypertension
     Dosage: UNK, QD (3/4 TABLETS, EVERY 1 DAYS)
     Route: 065
     Dates: start: 2005
  6. OMEPRAZOLE [Concomitant]
     Active Substance: OMEPRAZOLE
     Indication: Gastrointestinal disorder prophylaxis
     Dosage: 20 MG, QD (EVERY 1 DAYS)
     Route: 065
     Dates: start: 2005
  7. SPIRONOLACTONE [Concomitant]
     Active Substance: SPIRONOLACTONE
     Indication: Hypertension
     Dosage: 1 DOSAGE FORM, QD (EVERY 1 DAYS)
     Route: 065
     Dates: start: 2005
  8. ALLOPURINOL [Concomitant]
     Active Substance: ALLOPURINOL
     Indication: Prophylaxis
     Dosage: 30 MG, QD (EVERY 1 DAYS)
     Route: 065
     Dates: start: 2012
  9. LOPERAMIDE [Concomitant]
     Active Substance: LOPERAMIDE
     Indication: Diarrhoea
     Dosage: 2 MG, AS NECESSARY
     Route: 065
     Dates: start: 20210823
  10. SERTRALINE [Concomitant]
     Active Substance: SERTRALINE HYDROCHLORIDE
     Indication: Depression
     Dosage: 2 DOSAGE FORM, QD (EVERY 1 DAYS)
     Route: 065
     Dates: start: 20211027
  11. ZOLPIDEM [Concomitant]
     Active Substance: ZOLPIDEM TARTRATE
     Indication: Depression
     Dosage: 12 DRP, QD (EVERY 1 DAYS)
     Route: 065
     Dates: start: 202112
  12. ZINC OXIDE [Concomitant]
     Active Substance: ZINC OXIDE
     Indication: Perineal ulceration
     Dosage: 1 DOSAGE FORM, 1 APPLICATION- 2/3 TIMES PER WEEK
     Route: 065
     Dates: start: 20220411
  13. INADINE [Concomitant]
     Indication: Perineal ulceration
     Dosage: 1 DOSAGE FORM,  1 APPLICATION-2/3 TIMES PER WEEK
     Route: 065
     Dates: start: 20220411
  14. AMITRIPTYLINE [Concomitant]
     Active Substance: AMITRIPTYLINE
     Indication: Depression
     Dosage: 12 DRP, QD (EVERY 1 DAYS)
     Route: 065
     Dates: start: 202112
  15. FENTANYL [Concomitant]
     Active Substance: FENTANYL
     Indication: Perineal ulceration
     Dosage: 50 UG, QD (EVERY 1 DAYS)
     Route: 065
     Dates: start: 20220715
  16. OXYCODONE [Concomitant]
     Active Substance: OXYCODONE
     Indication: Perineal ulceration
     Dosage: 1 DOSAGE FORM, QD (EVERY 1 DAYS)
     Route: 065
     Dates: start: 20220714
  17. CALCIUM CARBONATE [Concomitant]
     Active Substance: CALCIUM CARBONATE
     Indication: Hypocalcaemia
     Dosage: 1 G, QD (EVERY 1 DAYS)
     Route: 065
     Dates: start: 20221221

REACTIONS (2)
  - COVID-19 pneumonia [Recovered/Resolved]
  - Pleural effusion [Unknown]

NARRATIVE: CASE EVENT DATE: 20230119
